FAERS Safety Report 12506066 (Version 1)
Quarter: 2016Q2

REPORT INFORMATION
  Report Type: Report from Study
  Country: GB (occurrence: GB)
  Receive Date: 20160628
  Receipt Date: 20160628
  Transmission Date: 20160815
  Serious: Yes (Other)
  Sender: FDA-Public Use
  Company Number: GB-ABBVIE-16K-167-1574532-00

PATIENT
  Age: 51 Year
  Sex: Male
  Weight: 91.7 kg

DRUGS (1)
  1. HUMIRA [Suspect]
     Active Substance: ADALIMUMAB
     Indication: ANKYLOSING SPONDYLITIS
     Route: 058
     Dates: start: 20160201, end: 20160416

REACTIONS (7)
  - Rash papular [Recovered/Resolved]
  - Eczema [Recovered/Resolved]
  - Cough [Unknown]
  - Eczema [Recovered/Resolved]
  - Arthralgia [Recovering/Resolving]
  - Insomnia [Recovered/Resolved]
  - Lower respiratory tract infection [Unknown]

NARRATIVE: CASE EVENT DATE: 201602
